FAERS Safety Report 10454927 (Version 2)
Quarter: 2015Q3

REPORT INFORMATION
  Report Type: Spontaneous
  Country: US (occurrence: US)
  Receive Date: 20140915
  Receipt Date: 20150914
  Transmission Date: 20151125
  Serious: No
  Sender: FDA-Public Use
  Company Number: US-ASTELLAS-2014US011845

PATIENT
  Sex: Male

DRUGS (1)
  1. XTANDI [Suspect]
     Active Substance: ENZALUTAMIDE
     Indication: PROSTATE CANCER
     Dosage: 80 MG (2 CAPSULES), ONCE DAILY
     Route: 048
     Dates: start: 20131204

REACTIONS (13)
  - Sinus disorder [Unknown]
  - Nasal congestion [Unknown]
  - Dysphagia [Unknown]
  - Product size issue [Unknown]
  - Fatigue [Unknown]
  - Rash [Unknown]
  - Hot flush [Unknown]
  - Underdose [Unknown]
  - Oropharyngeal pain [Unknown]
  - Pruritus [Unknown]
  - Feeling abnormal [Not Recovered/Not Resolved]
  - Rash [Recovered/Resolved]
  - Paraesthesia [Unknown]
